FAERS Safety Report 5020669-0 (Version None)
Quarter: 2006Q2

REPORT INFORMATION
  Report Type: 
  Country: None (occurrence: None)
  Receive Date: 20060602
  Receipt Date: 20060516
  Transmission Date: 20061013
  Serious: Yes (Other)
  Sender: FDA-Public Use
  Company Number: US200605003390

PATIENT
  Sex: Male

DRUGS (2)
  1. HUMULIN R [Suspect]
  2. NOVOLOG [Concomitant]

REACTIONS (2)
  - BLOOD GLUCOSE FLUCTUATION [None]
  - CATHETERISATION CARDIAC [None]
